FAERS Safety Report 7709513-8 (Version None)
Quarter: 2011Q3

REPORT INFORMATION
  Report Type: 
  Country: None (occurrence: None)
  Receive Date: 20110825
  Receipt Date: 20110817
  Transmission Date: 20111222
  Serious: Yes (Other)
  Sender: FDA-Public Use
  Company Number: CHPA2011US11036

PATIENT
  Age: 79 Year
  Sex: Male

DRUGS (3)
  1. NOVOLOG [Concomitant]
     Indication: BLOOD GLUCOSE INCREASED
  2. BENEFIBER W/ WHEAT DEXTRIN [Suspect]
     Dosage: UNK , UNK
     Route: 048
     Dates: start: 20110601
  3. MIRALAX [Suspect]
     Dosage: UNK
     Dates: start: 20110601

REACTIONS (1)
  - BLOOD GLUCOSE INCREASED [None]
